FAERS Safety Report 15344963 (Version 1)
Quarter: 2018Q3

REPORT INFORMATION
  Report Type: Spontaneous
  Country: US (occurrence: US)
  Receive Date: 20180903
  Receipt Date: 20180903
  Transmission Date: 20181010
  Serious: Yes (Life-Threatening, Hospitalization)
  Sender: FDA-Public Use
  Company Number: US-TEVA-2018-US-949257

PATIENT
  Sex: Female

DRUGS (1)
  1. NORETHINDRONE W/ETHINYLESTRADIOL [Suspect]
     Active Substance: ETHINYL ESTRADIOL\NORETHINDRONE
     Indication: PREMENSTRUAL SYNDROME
     Dosage: DOSE STRENGTH:  1
     Route: 065

REACTIONS (8)
  - Cyanosis [Unknown]
  - Blood pressure increased [Unknown]
  - Thrombosis [Unknown]
  - Dyspnoea [Unknown]
  - Pain [Unknown]
  - Muscle tightness [Unknown]
  - Musculoskeletal stiffness [Unknown]
  - Gait inability [Not Recovered/Not Resolved]

NARRATIVE: CASE EVENT DATE: 201807
